FAERS Safety Report 12129781 (Version 1)
Quarter: 2016Q1

REPORT INFORMATION
  Report Type: Report from Study
  Country: US (occurrence: US)
  Receive Date: 20160229
  Receipt Date: 20160229
  Transmission Date: 20160526
  Serious: Yes (Hospitalization, Disabling, Other)
  Sender: FDA-Public Use
  Company Number: US-AMGEN-USASL2016022955

PATIENT
  Age: 46 Year
  Sex: Female

DRUGS (3)
  1. PREDNISONE. [Concomitant]
     Active Substance: PREDNISONE
     Dosage: UNK
     Route: 065
  2. ENBREL [Suspect]
     Active Substance: ETANERCEPT
     Indication: RHEUMATOID ARTHRITIS
     Dosage: 50 MG, 2 TIMES/WK
     Route: 065
     Dates: start: 1998
  3. ENBREL [Suspect]
     Active Substance: ETANERCEPT
     Dosage: 50 MG, QWK
     Route: 065

REACTIONS (17)
  - Dry mouth [Not Recovered/Not Resolved]
  - Osteoporosis [Unknown]
  - General physical health deterioration [Unknown]
  - Hypertension [Unknown]
  - Injection site bruising [Unknown]
  - Headache [Unknown]
  - Closed fracture manipulation [Unknown]
  - Mobility decreased [Not Recovered/Not Resolved]
  - Lower limb fracture [Unknown]
  - Skin discolouration [Unknown]
  - Arterial rupture [Unknown]
  - Hand fracture [Unknown]
  - Fall [Unknown]
  - Diabetes mellitus [Unknown]
  - Macule [Unknown]
  - Nervous system disorder [Unknown]
  - Activities of daily living impaired [Not Recovered/Not Resolved]

NARRATIVE: CASE EVENT DATE: 1998
